FAERS Safety Report 25951591 (Version 1)
Quarter: 2025Q4

REPORT INFORMATION
  Report Type: Report from Study
  Country: GB (occurrence: GB)
  Receive Date: 20251023
  Receipt Date: 20251023
  Transmission Date: 20260117
  Serious: Yes (Other)
  Sender: HELSINN HEALTHCARE
  Company Number: GB-HBP-2025GB032495

PATIENT
  Sex: Male

DRUGS (1)
  1. MECHLORETHAMINE HYDROCHLORIDE [Suspect]
     Active Substance: MECHLORETHAMINE HYDROCHLORIDE
     Indication: Cutaneous T-cell lymphoma
     Dosage: UNK, UNKNOWN
     Route: 061
     Dates: start: 202506, end: 2025

REACTIONS (2)
  - Skin cancer [Unknown]
  - Drug intolerance [Unknown]
